FAERS Safety Report 17465852 (Version 1)
Quarter: 2020Q1

REPORT INFORMATION
  Report Type: Spontaneous
  Country: US (occurrence: US)
  Receive Date: 20200227
  Receipt Date: 20200227
  Transmission Date: 20200409
  Serious: Yes (Other)
  Sender: FDA-Public Use
  Company Number: US-APOTEX-2020AP008054

PATIENT
  Age: 77 Year
  Sex: Female

DRUGS (1)
  1. OMEPRAZOLE. [Suspect]
     Active Substance: OMEPRAZOLE
     Indication: GASTROOESOPHAGEAL REFLUX DISEASE
     Dosage: 20 MG, QD
     Route: 065

REACTIONS (4)
  - Gastric polyps [Recovering/Resolving]
  - Hypergastrinaemia [Recovering/Resolving]
  - Iron deficiency anaemia [Recovered/Resolved]
  - Gastrointestinal polyp haemorrhage [Recovered/Resolved]
